FAERS Safety Report 17891509 (Version 1)
Quarter: 2020Q2

REPORT INFORMATION
  Report Type: Spontaneous
  Country: PL (occurrence: PL)
  Receive Date: 20200612
  Receipt Date: 20200612
  Transmission Date: 20200714
  Serious: Yes (Other)
  Sender: FDA-Public Use
  Company Number: PL-AMGEN-POLSP2020090481

PATIENT
  Sex: Male

DRUGS (7)
  1. VECTIBIX [Suspect]
     Active Substance: PANITUMUMAB
     Dosage: EVERY 21 DAYS
     Route: 065
     Dates: start: 20200511
  2. FOLINIC ACID [Concomitant]
     Active Substance: LEUCOVORIN
     Indication: COLORECTAL CANCER METASTATIC
     Dosage: UNK
     Route: 065
     Dates: start: 20190114
  3. VECTIBIX [Suspect]
     Active Substance: PANITUMUMAB
     Dosage: DOSE REDUCTION TO 85%
     Route: 065
     Dates: start: 20190528, end: 20200420
  4. OXALIPLATIN. [Concomitant]
     Active Substance: OXALIPLATIN
     Indication: COLORECTAL CANCER METASTATIC
     Dosage: UNK
     Route: 065
     Dates: start: 20190114
  5. VECTIBIX [Suspect]
     Active Substance: PANITUMUMAB
     Indication: COLORECTAL CANCER METASTATIC
     Dosage: UNK UNK, Q2WK (EVERY 14 DAYS)
     Route: 065
     Dates: start: 20190114
  6. VECTIBIX [Suspect]
     Active Substance: PANITUMUMAB
     Dosage: EVERY 21 DAYS AFTER SIXTH COURSE
     Route: 065
     Dates: start: 201904
  7. 5-FU [FLUOROURACIL] [Concomitant]
     Active Substance: FLUOROURACIL
     Indication: COLORECTAL CANCER METASTATIC
     Dosage: UNK
     Route: 065
     Dates: start: 20190114

REACTIONS (3)
  - Neutropenia [Unknown]
  - Pyrexia [Unknown]
  - Acne [Unknown]

NARRATIVE: CASE EVENT DATE: 2019
